FAERS Safety Report 4401216-0 (Version None)
Quarter: 2004Q3

REPORT INFORMATION
  Report Type: 
  Country: None (occurrence: None)
  Receive Date: 20040907
  Receipt Date: 20031230
  Transmission Date: 20050211
  Serious: No
  Sender: FDA-Public Use
  Company Number: US-BRISTOL-MYERS SQUIBB COMPANY-12467122

PATIENT
  Age: 48 Year
  Sex: Female
  Weight: 66 kg

DRUGS (5)
  1. COUMADIN [Suspect]
     Route: 048
     Dates: start: 20001201
  2. CLEOCIN [Concomitant]
  3. BIAXIN [Concomitant]
  4. VANCOMYCIN [Concomitant]
  5. MEDROL [Concomitant]

REACTIONS (1)
  - PLATELET COUNT DECREASED [None]
